FAERS Safety Report 5392165-2 (Version None)
Quarter: 2007Q3

REPORT INFORMATION
  Report Type: 
  Country: None (occurrence: None)
  Receive Date: 20070720
  Receipt Date: 20070713
  Transmission Date: 20080115
  Serious: Yes (Hospitalization)
  Sender: FDA-Public Use
  Company Number: FR-AVENTIS-200712290FR

PATIENT
  Age: 29 Year
  Sex: Female

DRUGS (3)
  1. FLAGYL [Suspect]
     Indication: COLITIS
     Dates: start: 20070323, end: 20070403
  2. CLAFORAN [Suspect]
     Indication: COLITIS
     Dates: start: 20070325, end: 20070328
  3. CIFLOX                             /00697201/ [Suspect]
     Indication: COLITIS

REACTIONS (1)
  - PYREXIA [None]
